FAERS Safety Report 8442131-5 (Version None)
Quarter: 2012Q2

REPORT INFORMATION
  Report Type: 
  Country: None (occurrence: None)
  Receive Date: 20120615
  Receipt Date: 20120611
  Transmission Date: 20120825
  Serious: Yes (Other)
  Sender: FDA-Public Use
  Company Number: US-PFIZER INC-2012140030

PATIENT
  Sex: Female

DRUGS (1)
  1. EFFEXOR XR [Suspect]
     Dosage: UNK

REACTIONS (6)
  - CRYING [None]
  - HEADACHE [None]
  - WITHDRAWAL SYNDROME [None]
  - AGITATION [None]
  - DEPRESSION [None]
  - FEELING JITTERY [None]
